FAERS Safety Report 19927644 (Version 1)
Quarter: 2021Q4

REPORT INFORMATION
  Report Type: Spontaneous
  Country: US (occurrence: US)
  Receive Date: 20211005
  Receipt Date: 20211005
  Transmission Date: 20220303
  Serious: No
  Sender: FDA-Public Use
  Company Number: None

PATIENT

DRUGS (2)
  1. FOSPHENYTOIN [Suspect]
     Active Substance: FOSPHENYTOIN
  2. FAMOTIDINE [Suspect]
     Active Substance: FAMOTIDINE

REACTIONS (3)
  - Product appearance confusion [None]
  - Product name confusion [None]
  - Product compounding quality issue [None]
